FAERS Safety Report 8300183-7 (Version None)
Quarter: 2012Q2

REPORT INFORMATION
  Report Type: 
  Country: None (occurrence: None)
  Receive Date: 20120417
  Receipt Date: 20120403
  Transmission Date: 20120825
  Serious: Yes (Other)
  Sender: FDA-Public Use
  Company Number: 2012-00607

PATIENT
  Age: 69 Year
  Sex: Male
  Weight: 127 kg

DRUGS (5)
  1. ATENOLOL [Concomitant]
  2. LISINOPRIL [Suspect]
     Indication: HYPERTENSION
     Dosage: 20 MG (20 MG, 1 IN 1 D), UNKNOWN
     Dates: start: 20120127, end: 20120301
  3. ATORVASTATIN [Concomitant]
  4. LEVOTHYROXINE SODIUM [Concomitant]
  5. LITHIUM CARBONATE + LITHIUM CITRATE (PRIADEL) [Concomitant]

REACTIONS (7)
  - UPPER-AIRWAY COUGH SYNDROME [None]
  - OCULAR HYPERAEMIA [None]
  - LYMPHOCYTE COUNT INCREASED [None]
  - SINUSITIS [None]
  - BACTERIAL INFECTION [None]
  - HEADACHE [None]
  - LEUKOCYTOSIS [None]
